FAERS Safety Report 5781410-7 (Version None)
Quarter: 2008Q2

REPORT INFORMATION
  Report Type: 
  Country: None (occurrence: None)
  Receive Date: 20080623
  Receipt Date: 20080613
  Transmission Date: 20081010
  Serious: Yes (Other)
  Sender: FDA-Public Use
  Company Number: HQWYE779021JAN05

PATIENT
  Sex: Female
  Weight: 68.1 kg

DRUGS (5)
  1. PREMPRO [Suspect]
     Dosage: 0.625MG/2.5MG
     Route: 048
     Dates: start: 20010101, end: 20030101
  2. SYNTHROID [Concomitant]
  3. UNSPECIFIED ESTROGEN REPLACEMENT THERAPY [Suspect]
     Dosage: UNKNOWN
     Route: 048
     Dates: start: 19980101, end: 20000101
  4. PROVERA [Suspect]
     Dosage: 2.5MG
     Route: 048
     Dates: start: 19950101, end: 19980101
  5. PREMARIN [Suspect]
     Dosage: 0.625MG
     Route: 048
     Dates: start: 19950101, end: 19980101

REACTIONS (1)
  - BREAST CANCER [None]
